FAERS Safety Report 8545233 (Version 3)
Quarter: 2012Q4

REPORT INFORMATION
  Report Type: 
  Country: DK (occurrence: DK)
  Receive Date: 20120503
  Receipt Date: 20121030
  Transmission Date: 20130627
  Serious: Yes (Hospitalization)
  Sender: FDA-Public Use
  Company Number: DK-B.I. PHARMACEUTICALS,INC./RIDGEFIELD-2012-SW-00346DB

PATIENT
  Age: 79 Year
  Sex: Male
  Weight: 75 kg

DRUGS (3)
  1. PRADAXA [Suspect]
     Indication: ATRIAL FIBRILLATION
     Dosage: 300 mg
     Route: 048
     Dates: start: 20110914, end: 20120413
  2. COOZAR COMP. [Concomitant]
     Indication: HYPERTENSION
     Dates: start: 20070320
  3. ISOPTIN RETARD [Concomitant]
     Indication: HYPERTENSION
     Dates: start: 20110401

REACTIONS (1)
  - Iron deficiency anaemia [Recovered/Resolved]
